FAERS Safety Report 18036635 (Version 1)
Quarter: 2020Q3

REPORT INFORMATION
  Report Type: Spontaneous
  Country: US (occurrence: US)
  Receive Date: 20200717
  Receipt Date: 20200717
  Transmission Date: 20201103
  Serious: Yes (Death)
  Sender: FDA-Public Use
  Company Number: None

PATIENT
  Age: 92 Year
  Sex: Female

DRUGS (6)
  1. SERTRALINE [Concomitant]
     Active Substance: SERTRALINE HYDROCHLORIDE
  2. RISPERDAL CONSTA [Suspect]
     Active Substance: RISPERIDONE
     Indication: PSYCHOTIC DISORDER
     Route: 030
  3. DIGOXIN. [Concomitant]
     Active Substance: DIGOXIN
  4. GABAPENTIN. [Concomitant]
     Active Substance: GABAPENTIN
  5. RISPERDAL CONSTA [Concomitant]
     Active Substance: RISPERIDONE
  6. PHENYTOIN. [Concomitant]
     Active Substance: PHENYTOIN

REACTIONS (1)
  - Death [None]

NARRATIVE: CASE EVENT DATE: 20200716
